FAERS Safety Report 16906626 (Version 3)
Quarter: 2019Q4

REPORT INFORMATION
  Report Type: Spontaneous
  Country: BR (occurrence: BR)
  Receive Date: 20191011
  Receipt Date: 20191028
  Transmission Date: 20200122
  Serious: Yes (Other)
  Sender: FDA-Public Use
  Company Number: BR-AMGEN-BRASP2019156808

PATIENT
  Sex: Male
  Weight: 96 kg

DRUGS (8)
  1. ENBREL [Suspect]
     Active Substance: ETANERCEPT
     Dosage: 50 MILLIGRAM, QWK
     Route: 065
  2. ENBREL [Suspect]
     Active Substance: ETANERCEPT
     Dosage: 50 MILLIGRAM, QWK
     Route: 065
     Dates: start: 2014
  3. ENBREL [Suspect]
     Active Substance: ETANERCEPT
     Dosage: 50 MILLIGRAM, QWK
     Route: 065
  4. COLCHICINE. [Concomitant]
     Active Substance: COLCHICINE
     Dosage: UNK
  5. ENBREL [Suspect]
     Active Substance: ETANERCEPT
     Indication: RHEUMATOID ARTHRITIS
     Dosage: UNK
     Route: 065
  6. BACTRIM [Concomitant]
     Active Substance: SULFAMETHOXAZOLE\TRIMETHOPRIM
     Dosage: UNK
  7. COLCHICINE. [Concomitant]
     Active Substance: COLCHICINE
     Dosage: UNK
  8. COLCHICINE. [Concomitant]
     Active Substance: COLCHICINE
     Dosage: UNK

REACTIONS (4)
  - Wound [Not Recovered/Not Resolved]
  - Pyrexia [Unknown]
  - Impaired healing [Unknown]
  - Drug ineffective [Not Recovered/Not Resolved]
